FAERS Safety Report 9236159 (Version 1)
Quarter: 2013Q2

REPORT INFORMATION
  Report Type: Spontaneous
  Country: US (occurrence: None)
  Receive Date: 20130416
  Receipt Date: 20130416
  Transmission Date: 20140414
  Serious: Yes (Other)
  Sender: FDA-Public Use
  Company Number: None

PATIENT
  Age: 77 Year
  Sex: Female
  Weight: 90.72 kg

DRUGS (1)
  1. HYDROCODON ACETAMINOPHEN 5-500 [Suspect]
     Indication: TOOTH ABSCESS
     Dosage: 5-500  1  4-6 HR  ORAL
     Route: 048
     Dates: start: 20130319

REACTIONS (3)
  - Nausea [None]
  - Dizziness [None]
  - Vomiting [None]
